FAERS Safety Report 21375500 (Version 1)
Quarter: 2022Q3

REPORT INFORMATION
  Report Type: Report from Study
  Country: US (occurrence: US)
  Receive Date: 20220926
  Receipt Date: 20220926
  Transmission Date: 20221026
  Serious: Yes (Hospitalization)
  Sender: FDA-Public Use
  Company Number: US-GILEAD-2022-0596629

PATIENT
  Age: 39 Year
  Sex: Female
  Weight: 56.236 kg

DRUGS (1)
  1. AMBRISENTAN [Suspect]
     Active Substance: AMBRISENTAN
     Indication: Product used for unknown indication
     Dosage: 10 MG
     Route: 065
     Dates: start: 20210422

REACTIONS (2)
  - Foot operation [Unknown]
  - Weight increased [Unknown]

NARRATIVE: CASE EVENT DATE: 20210712
